FAERS Safety Report 13256229 (Version 1)
Quarter: 2017Q1

REPORT INFORMATION
  Report Type: Spontaneous
  Country: US (occurrence: US)
  Receive Date: 20170220
  Receipt Date: 20170220
  Transmission Date: 20170428
  Serious: Yes (Other)
  Sender: FDA-Public Use
  Company Number: None

PATIENT
  Age: 54 Year
  Sex: Female
  Weight: 48.6 kg

DRUGS (3)
  1. SLOW MAG (MAGNESIUM) [Concomitant]
  2. MULTI VITAMIN [Concomitant]
     Active Substance: VITAMINS
  3. RISEDRONATE TAB 150 MG. MFG [Suspect]
     Active Substance: RISEDRONATE SODIUM
     Indication: OSTEOPOROSIS PROPHYLAXIS
     Dosage: ?          QUANTITY:1 TABLET(S);OTHER FREQUENCY:ONCE A MONTH;?
     Route: 048
     Dates: start: 20170127, end: 20170220

REACTIONS (9)
  - Back pain [None]
  - Musculoskeletal pain [None]
  - Pain in extremity [None]
  - Bone pain [None]
  - Immobile [None]
  - Non-cardiac chest pain [None]
  - Arthralgia [None]
  - Joint range of motion decreased [None]
  - Muscle spasms [None]

NARRATIVE: CASE EVENT DATE: 20170127
